FAERS Safety Report 21478835 (Version 1)
Quarter: 2022Q4

REPORT INFORMATION
  Report Type: Report from Study
  Country: EG (occurrence: EG)
  Receive Date: 20221019
  Receipt Date: 20221019
  Transmission Date: 20230113
  Serious: Yes (Other)
  Sender: FDA-Public Use
  Company Number: EG-NOVARTISPH-NVSC2022EG234545

PATIENT
  Age: 73 Year
  Sex: Male

DRUGS (6)
  1. GLIVEC [Suspect]
     Active Substance: IMATINIB MESYLATE
     Indication: Chronic leukaemia
     Dosage: 1 DOSAGE FORM, QD
     Route: 065
  2. GLIVEC [Suspect]
     Active Substance: IMATINIB MESYLATE
     Dosage: 400 MG, QD
     Route: 048
     Dates: start: 2021, end: 20221015
  3. LASIX [Concomitant]
     Active Substance: FUROSEMIDE
     Indication: Cardiac disorder
     Dosage: 20 MG
     Route: 048
     Dates: start: 2008
  4. ASPIRIN [Concomitant]
     Active Substance: ASPIRIN
     Indication: Cardiac disorder
     Dosage: UNK UNK, QD (1- 2 TABLETS)
     Route: 048
     Dates: start: 2008
  5. EXAMIDE [Concomitant]
     Indication: Cardiac disorder
     Dosage: UNK UNK, QD (1- 2 TABLETS)
     Route: 048
     Dates: start: 2008
  6. HISTAMINE [Concomitant]
     Active Substance: HISTAMINE
     Indication: Dyspnoea
     Dosage: UNK (STARTED MANY YEARS AGO TILL NOW, TAKEN WHEN NEEDED)
     Route: 065

REACTIONS (7)
  - Hypoglycaemia [Recovered/Resolved]
  - Coma [Recovered/Resolved]
  - Nasopharyngitis [Not Recovered/Not Resolved]
  - Fatigue [Recovering/Resolving]
  - Diarrhoea [Not Recovered/Not Resolved]
  - Product dose omission issue [Not Recovered/Not Resolved]
  - Product use in unapproved indication [Not Recovered/Not Resolved]

NARRATIVE: CASE EVENT DATE: 20211101
